FAERS Safety Report 7365054-1 (Version None)
Quarter: 2011Q1

REPORT INFORMATION
  Report Type: 
  Country: None (occurrence: None)
  Receive Date: 20110321
  Receipt Date: 20110311
  Transmission Date: 20110831
  Serious: Yes (Death, Hospitalization, Other)
  Sender: FDA-Public Use
  Company Number: PHHO2010BR06283

PATIENT
  Sex: Male
  Weight: 65.6 kg

DRUGS (6)
  1. CERTICAN [Suspect]
     Indication: RENAL TRANSPLANT
     Dosage: 3 MG, BID
     Route: 048
     Dates: start: 20100319, end: 20100525
  2. AEB071 [Suspect]
     Indication: RENAL TRANSPLANT
     Dosage: 600 MG/DAY
     Route: 048
     Dates: start: 20100319, end: 20100525
  3. MYFORTIC [Suspect]
     Indication: RENAL TRANSPLANT
     Dosage: 360 MG, BID
     Route: 048
     Dates: start: 20100525, end: 20110307
  4. TACROLIMUS [Suspect]
     Indication: RENAL TRANSPLANT
     Dosage: 5 MG / DAY
     Route: 048
     Dates: start: 20100525
  5. PREDNISONE [Suspect]
     Indication: RENAL TRANSPLANT
     Dosage: 10 MG, QD
     Route: 048
     Dates: start: 20100322, end: 20110307
  6. MYCOPHENOLATE MOFETIL [Suspect]
     Indication: RENAL TRANSPLANT
     Dosage: 1000 MG, BID
     Route: 048
     Dates: start: 20100525

REACTIONS (27)
  - URINARY TRACT INFECTION PSEUDOMONAL [None]
  - PYELONEPHRITIS [None]
  - PROTEINURIA [None]
  - BLOOD ALBUMIN DECREASED [None]
  - BACTERIAL INFECTION [None]
  - GASTROINTESTINAL HAEMORRHAGE [None]
  - NEPHROTIC SYNDROME [None]
  - LYMPHOCELE [None]
  - SEPTIC SHOCK [None]
  - SEPSIS [None]
  - URETHRAL DILATATION [None]
  - URETHRAL OPERATION [None]
  - UROSTOMY [None]
  - BLADDER CATHETER REMOVAL [None]
  - DYSLIPIDAEMIA [None]
  - SURGERY [None]
  - RENAL IMPAIRMENT [None]
  - KIDNEY TRANSPLANT REJECTION [None]
  - URETHRAL STENOSIS [None]
  - OEDEMA PERIPHERAL [None]
  - SHOCK HAEMORRHAGIC [None]
  - COAGULOPATHY [None]
  - BLADDER CATHETERISATION [None]
  - BLADDER OPERATION [None]
  - SCROTAL OEDEMA [None]
  - WEIGHT INCREASED [None]
  - CYSTOSTOMY [None]
